FAERS Safety Report 6919966-0 (Version None)
Quarter: 2010Q3

REPORT INFORMATION
  Report Type: 
  Country: None (occurrence: None)
  Receive Date: 20100811
  Receipt Date: 20100805
  Transmission Date: 20110219
  Serious: Yes (Hospitalization)
  Sender: FDA-Public Use
  Company Number: PHHO2010GB09662

PATIENT
  Sex: Male
  Weight: 94 kg

DRUGS (7)
  1. AFINITOR [Suspect]
     Indication: METASTATIC RENAL CELL CARCINOMA
     Dosage: 10 MG
     Route: 048
     Dates: start: 20091029, end: 20100122
  2. AFINITOR [Suspect]
     Dosage: 5 MG
     Route: 048
     Dates: start: 20100128, end: 20100609
  3. FERROUS SULFATE TAB [Concomitant]
  4. LEUPROLIDE ACETATE [Concomitant]
  5. ZOMETA [Concomitant]
  6. AMLODIPINE [Concomitant]
  7. PREDNISOLONE [Concomitant]

REACTIONS (18)
  - ABDOMINAL DISTENSION [None]
  - ASCITES [None]
  - ATRIAL FIBRILLATION [None]
  - CARDIAC TAMPONADE [None]
  - DEEP VEIN THROMBOSIS [None]
  - DYSPNOEA [None]
  - DYSPNOEA AT REST [None]
  - FLUID RETENTION [None]
  - MALIGNANT NEOPLASM PROGRESSION [None]
  - OEDEMA PERIPHERAL [None]
  - PERICARDIAL DRAINAGE [None]
  - PERICARDIAL EFFUSION [None]
  - PLEURAL EFFUSION [None]
  - TACHYCARDIA [None]
  - TACHYPNOEA [None]
  - TENDERNESS [None]
  - THORACIC CAVITY DRAINAGE [None]
  - VENOUS PRESSURE JUGULAR INCREASED [None]
